FAERS Safety Report 9828581 (Version 1)
Quarter: 2014Q1

REPORT INFORMATION
  Report Type: Report from Study
  Country: US (occurrence: US)
  Receive Date: 20140117
  Receipt Date: 20140117
  Transmission Date: 20141002
  Serious: No
  Sender: FDA-Public Use
  Company Number: US-GILEAD-2014-0092235

PATIENT
  Age: 57 Year
  Sex: Male

DRUGS (2)
  1. SOFOSBUVIR [Suspect]
     Indication: HEPATITIS C
     Dosage: 400 MG, UNK
     Route: 065
     Dates: start: 20140112
  2. RIBAVIRIN [Concomitant]

REACTIONS (2)
  - Diarrhoea [Unknown]
  - Vomiting [Unknown]
